FAERS Safety Report 8523940-0 (Version None)
Quarter: 2012Q3

REPORT INFORMATION
  Report Type: 
  Country: None (occurrence: None)
  Receive Date: 20120720
  Receipt Date: 20120711
  Transmission Date: 20120928
  Serious: Yes (Hospitalization)
  Sender: FDA-Public Use
  Company Number: US-BRISTOL-MYERS SQUIBB COMPANY-15921380

PATIENT
  Age: 75 Year
  Sex: Male
  Weight: 77 kg

DRUGS (15)
  1. DIPHENOXYLATE HCL + ATROPINE SULFATE [Concomitant]
     Dosage: 4 TIMES DAILY
  2. FONDAPARINUX SODIUM [Concomitant]
     Route: 058
  3. RITONAVIR [Interacting]
     Indication: HIV INFECTION
  4. BUDESONIDE [Interacting]
     Indication: COLITIS MICROSCOPIC
     Route: 048
  5. ATENOLOL [Concomitant]
  6. LISINOPRIL [Concomitant]
  7. LEVOTHYROXINE SODIUM [Concomitant]
  8. TESTOSTERONE [Concomitant]
     Dosage: TESTOSTERONE PATCH
  9. LAMIVUDINE [Concomitant]
  10. VARDENAFIL HYDROCHLORIDE (LEVITRA) [Concomitant]
  11. ATAZANAVIR [Suspect]
     Indication: HIV INFECTION
  12. NEVIRAPINE [Concomitant]
  13. TRAZODONE HCL [Concomitant]
  14. CALCITRIOL [Concomitant]
  15. CHOLECALCIFEROL [Concomitant]
     Dosage: 1 DF = 400 UNITS

REACTIONS (2)
  - DRUG INTERACTION [None]
  - CUSHING'S SYNDROME [None]
